FAERS Safety Report 4427141-7 (Version None)
Quarter: 2004Q3

REPORT INFORMATION
  Report Type: 
  Country: None (occurrence: None)
  Receive Date: 20040726
  Receipt Date: 20040423
  Transmission Date: 20050211
  Serious: No
  Sender: FDA-Public Use
  Company Number: USA040465875

PATIENT
  Age: 76 Year
  Sex: Female
  Weight: 75 kg

DRUGS (9)
  1. FORTEO [Suspect]
     Indication: OSTEOPOROSIS
     Dosage: 20 UG DAY
     Dates: start: 20040422
  2. PRILOSEC [Concomitant]
  3. ATIVAN [Concomitant]
  4. TENORMIN [Concomitant]
  5. DILANTIN [Concomitant]
  6. ASPIRIN [Concomitant]
  7. COUMADIN [Concomitant]
  8. CLONIDINE HCL [Concomitant]
  9. AVAPRO [Concomitant]

REACTIONS (1)
  - SINUSITIS [None]
